FAERS Safety Report 7591704-0 (Version None)
Quarter: 2011Q3

REPORT INFORMATION
  Report Type: 
  Country: None (occurrence: None)
  Receive Date: 20110706
  Receipt Date: 20110606
  Transmission Date: 20111222
  Serious: No
  Sender: FDA-Public Use
  Company Number: US-BAYER-2011-049476

PATIENT
  Age: 75 Year
  Sex: Male
  Weight: 93 kg

DRUGS (3)
  1. CALCIUM W/COLECALCIFEROL [Concomitant]
     Dosage: UNK
  2. ALEVE (CAPLET) [Suspect]
     Indication: ARTHRITIS
     Dosage: 1 DF, BID
     Route: 048
     Dates: start: 20110201, end: 20110530
  3. VITAMIN B-12 [Concomitant]

REACTIONS (4)
  - PRURITUS [None]
  - RASH MACULAR [None]
  - NO ADVERSE EVENT [None]
  - ACNE [None]
